FAERS Safety Report 10744479 (Version 1)
Quarter: 2015Q1

REPORT INFORMATION
  Report Type: Spontaneous
  Country: CO (occurrence: None)
  Receive Date: 20150126
  Receipt Date: 20150126
  Transmission Date: 20150721
  Serious: Yes (Life-Threatening)
  Sender: FDA-Public Use
  Company Number: CO2015GSK008725

PATIENT
  Age: 32 Year
  Sex: Male

DRUGS (4)
  1. RITONAVIR. [Concomitant]
     Active Substance: RITONAVIR
  2. GEMFIBROZIL. [Concomitant]
     Active Substance: GEMFIBROZIL
  3. KIVEXA [Suspect]
     Active Substance: ABACAVIR SULFATE\LAMIVUDINE
     Indication: HIV INFECTION
     Route: 048
     Dates: start: 20121205
  4. TELZIR [Suspect]
     Active Substance: FOSAMPRENAVIR CALCIUM

REACTIONS (2)
  - Dyslipidaemia [None]
  - Hypertriglyceridaemia [None]

NARRATIVE: CASE EVENT DATE: 20140401
